FAERS Safety Report 11967524 (Version 3)
Quarter: 2017Q1

REPORT INFORMATION
  Report Type: Report from Study
  Country: KR (occurrence: KR)
  Receive Date: 20160127
  Receipt Date: 20170303
  Transmission Date: 20170428
  Serious: Yes (Death, Hospitalization, Other)
  Sender: FDA-Public Use
  Company Number: KR-GILEAD-2014-0127204

PATIENT
  Age: 55 Year
  Sex: Male
  Weight: 73 kg

DRUGS (4)
  1. URSA [Concomitant]
     Indication: PROPHYLAXIS
     Dosage: UNK
     Dates: start: 20140613, end: 20140705
  2. HEPA-MERZ                          /01390204/ [Concomitant]
     Indication: PROPHYLAXIS
     Dosage: UNK
     Dates: start: 20140609
  3. LEGALON [Concomitant]
     Active Substance: MILK THISTLE
     Indication: PROPHYLAXIS
     Dosage: UNK
     Dates: start: 20140609, end: 20140707
  4. TENOFOVIR DISOPROXIL FUMARATE. [Suspect]
     Active Substance: TENOFOVIR DISOPROXIL FUMARATE
     Indication: CHRONIC HEPATITIS B
     Dosage: 300 MG, QD
     Route: 048
     Dates: start: 20140609, end: 20140720

REACTIONS (8)
  - Gastric ulcer [Recovered/Resolved]
  - Dysuria [Recovered/Resolved]
  - Hepatocellular carcinoma [Fatal]
  - Constipation [Recovered/Resolved]
  - Dyspepsia [Recovered/Resolved]
  - Hypertension [Recovered/Resolved]
  - Abdominal pain [Recovered/Resolved]
  - Flank pain [Recovered/Resolved]

NARRATIVE: CASE EVENT DATE: 20140610
